FAERS Safety Report 7480428-6 (Version None)
Quarter: 2011Q2

REPORT INFORMATION
  Report Type: 
  Country: None (occurrence: None)
  Receive Date: 20110506
  Receipt Date: 20110421
  Transmission Date: 20111010
  Serious: Yes (Hospitalization)
  Sender: FDA-Public Use
  Company Number: 2010SP049631

PATIENT
  Age: 8 Year
  Sex: Female

DRUGS (2)
  1. DESLORATADINE [Suspect]
     Indication: RHINITIS ALLERGIC
     Dosage: ;'PO
     Route: 048
     Dates: start: 20091001, end: 20091101
  2. DESLORATADINE [Suspect]
     Indication: RHINITIS ALLERGIC
     Dosage: ;'PO
     Route: 048
     Dates: end: 20100101

REACTIONS (2)
  - CHOLESTASIS [None]
  - CYTOLYTIC HEPATITIS [None]
